FAERS Safety Report 21269015 (Version 3)
Quarter: 2022Q4

REPORT INFORMATION
  Report Type: Spontaneous
  Country: US (occurrence: US)
  Receive Date: 20220830
  Receipt Date: 20221126
  Transmission Date: 20230113
  Serious: Yes (Hospitalization, Other)
  Sender: FDA-Public Use
  Company Number: US-ALXN-A202210180

PATIENT
  Sex: Male

DRUGS (2)
  1. SOLIRIS [Suspect]
     Active Substance: ECULIZUMAB
     Indication: Myasthenia gravis
     Dosage: UNK, Q2W
     Route: 065
  2. ULTOMIRIS [Suspect]
     Active Substance: RAVULIZUMAB-CWVZ
     Indication: Myasthenia gravis
     Dosage: UNK
     Route: 065

REACTIONS (8)
  - Myasthenia gravis crisis [Unknown]
  - Thymectomy [Unknown]
  - Suspected COVID-19 [Unknown]
  - Therapeutic product effect decreased [Unknown]
  - Muscular weakness [Unknown]
  - Therapeutic response shortened [Unknown]
  - Dyspnoea [Unknown]
  - Symptom recurrence [Unknown]
